FAERS Safety Report 21107869 (Version 4)
Quarter: 2022Q4

REPORT INFORMATION
  Report Type: Spontaneous
  Country: US (occurrence: US)
  Receive Date: 20220720
  Receipt Date: 20221228
  Transmission Date: 20230113
  Serious: No
  Sender: FDA-Public Use
  Company Number: US-SA-SAC20220715001678

PATIENT
  Age: 19 Year
  Sex: Female

DRUGS (1)
  1. LUMIZYME [Suspect]
     Active Substance: ALGLUCOSIDASE ALFA
     Indication: Glycogen storage disease type II
     Dosage: 1350 MG, QOW
     Route: 042
     Dates: start: 20220511

REACTIONS (6)
  - Exposure to SARS-CoV-2 [Unknown]
  - Viral infection [Unknown]
  - Fatigue [Unknown]
  - Malaise [Unknown]
  - Poor venous access [Unknown]
  - Weight decreased [Unknown]

NARRATIVE: CASE EVENT DATE: 20220101
